FAERS Safety Report 8073318-1 (Version None)
Quarter: 2012Q1

REPORT INFORMATION
  Report Type: 
  Country: None (occurrence: None)
  Receive Date: 20120126
  Receipt Date: 20120123
  Transmission Date: 20120608
  Serious: Yes (Hospitalization, Other)
  Sender: FDA-Public Use
  Company Number: BR-ABBOTT-11P-020-0880188-00

PATIENT
  Sex: Male
  Weight: 81 kg

DRUGS (3)
  1. METHOTREXATE [Concomitant]
     Indication: PRODUCT USED FOR UNKNOWN INDICATION
     Dates: start: 20100701, end: 20110901
  2. HUMIRA [Suspect]
     Indication: PSORIATIC ARTHROPATHY
     Route: 058
     Dates: start: 20110801, end: 20111001
  3. FOLIC ACID [Concomitant]
     Indication: PRODUCT USED FOR UNKNOWN INDICATION
     Dates: start: 20100701, end: 20110901

REACTIONS (12)
  - VOMITING [None]
  - ASTHENIA [None]
  - IMMUNODEFICIENCY [None]
  - MALAISE [None]
  - COUGH [None]
  - PYREXIA [None]
  - TUBERCULOSIS [None]
  - DECREASED APPETITE [None]
  - PSORIASIS [None]
  - BONE PAIN [None]
  - WEIGHT DECREASED [None]
  - DIZZINESS [None]
